FAERS Safety Report 6416035-3 (Version None)
Quarter: 2009Q4

REPORT INFORMATION
  Report Type: 
  Country: None (occurrence: None)
  Receive Date: 20091027
  Receipt Date: 20091019
  Transmission Date: 20100525
  Serious: Yes (Hospitalization)
  Sender: FDA-Public Use
  Company Number: US-ASTRAZENECA-2009SE20944

PATIENT
  Sex: Male

DRUGS (1)
  1. CRESTOR [Suspect]
     Route: 048
     Dates: start: 20050101

REACTIONS (3)
  - HERPES ZOSTER [None]
  - POOR PERIPHERAL CIRCULATION [None]
  - VASCULAR CALCIFICATION [None]
